FAERS Safety Report 9392084 (Version 1)
Quarter: 2013Q3

REPORT INFORMATION
  Report Type: Spontaneous
  Country: CA (occurrence: CA)
  Receive Date: 20130709
  Receipt Date: 20130709
  Transmission Date: 20140515
  Serious: Yes (Hospitalization)
  Sender: FDA-Public Use
  Company Number: CA-BAXTER-2013BAX025399

PATIENT
  Age: 83 Year
  Sex: Female

DRUGS (4)
  1. DIANEAL PD4 SOLUTION WITH 1.5% DEXTROSE AND 2.5 MEQ/L CALCIUM [Suspect]
     Indication: RENAL FAILURE
     Route: 033
     Dates: start: 201112
  2. DIANEAL PD4 SOLUTION WITH 2.5% DEXTROSE AND 2.5 MEQ/L CALCIUM [Suspect]
     Indication: RENAL FAILURE
     Route: 033
     Dates: start: 201112
  3. EXTRANEAL [Suspect]
     Indication: RENAL FAILURE
     Route: 033
     Dates: start: 201112
  4. WARFARIN [Suspect]
     Indication: GASTROINTESTINAL DISORDER
     Route: 065

REACTIONS (1)
  - Rectal haemorrhage [Recovered/Resolved]
